FAERS Safety Report 7352564-6 (Version None)
Quarter: 2011Q1

REPORT INFORMATION
  Report Type: 
  Country: None (occurrence: None)
  Receive Date: 20110315
  Receipt Date: 20110307
  Transmission Date: 20110831
  Serious: Yes (Other)
  Sender: FDA-Public Use
  Company Number: FR-GENZYME-THYM-1002346

PATIENT
  Age: 24 Year
  Sex: Male

DRUGS (6)
  1. MYCOPHENOLATE MOFETIL [Concomitant]
     Indication: IMMUNOSUPPRESSION
     Dosage: 720 MG, QD
     Route: 065
  2. CICLOSPORIN [Concomitant]
     Indication: IMMUNOSUPPRESSION
     Route: 065
  3. TACROLIMUS [Concomitant]
     Indication: IMMUNOSUPPRESSION
     Route: 065
  4. SIROLIMUS [Concomitant]
     Indication: IMMUNOSUPPRESSION
     Route: 065
  5. THYMOGLOBULIN [Suspect]
     Indication: PROPHYLAXIS AGAINST TRANSPLANT REJECTION
     Route: 042
  6. STEROIDS [Concomitant]
     Indication: IMMUNOSUPPRESSION
     Route: 065

REACTIONS (4)
  - CHRONIC ALLOGRAFT NEPHROPATHY [None]
  - TRANSPLANT FAILURE [None]
  - HEPATITIS E [None]
  - KIDNEY TRANSPLANT REJECTION [None]
